FAERS Safety Report 9385169 (Version 3)
Quarter: 2013Q3

REPORT INFORMATION
  Report Type: Spontaneous
  Country: AU (occurrence: AU)
  Receive Date: 20130705
  Receipt Date: 20130726
  Transmission Date: 20140515
  Serious: Yes (Death)
  Sender: FDA-Public Use
  Company Number: AU-B.I. PHARMACEUTICALS,INC./RIDGEFIELD-2013-AU-00796AU

PATIENT
  Age: 73 Year
  Sex: Male
  Weight: 76 kg

DRUGS (11)
  1. PRADAXA [Suspect]
     Indication: CEREBROVASCULAR ACCIDENT PROPHYLAXIS
     Dosage: 220 MG
     Dates: start: 20110902
  2. PRADAXA [Suspect]
     Indication: ATRIAL FIBRILLATION
  3. CELEBREX [Concomitant]
     Dosage: 200 MG
  4. CIALIS [Concomitant]
     Dosage: 20 MG
  5. DUROGESIC [Concomitant]
     Dosage: 25 MCG/HOUR
  6. GLUCOSAMINE [Concomitant]
     Dosage: 2 G
  7. LIPITOR [Concomitant]
     Dosage: 20 MG
  8. LYRICA [Concomitant]
     Dosage: 150 MG
  9. PANADOL OSTEO [Concomitant]
  10. SOMAC [Concomitant]
     Dosage: 40 MG
  11. ZYDOL [Concomitant]
     Dosage: 200 MG

REACTIONS (11)
  - Subarachnoid haemorrhage [Fatal]
  - Syncope [Unknown]
  - Laceration [Unknown]
  - Traumatic haematoma [Unknown]
  - Blood urine present [Unknown]
  - Actinic keratosis [Unknown]
  - Varicose vein [Unknown]
  - Age-related macular degeneration [Unknown]
  - Diverticulum [Unknown]
  - Diverticulitis [Unknown]
  - Hypertension [Unknown]
